FAERS Safety Report 13188210 (Version 2)
Quarter: 2018Q2

REPORT INFORMATION
  Report Type: Spontaneous
  Country: JP (occurrence: JP)
  Receive Date: 20170206
  Receipt Date: 20180626
  Transmission Date: 20180711
  Serious: Yes (Other)
  Sender: FDA-Public Use
  Company Number: JP-OTSUKA-JP-2015-10281

PATIENT
  Age: 36 Year
  Sex: Male

DRUGS (2)
  1. PLETAAL OD TABLETS 50MG [Suspect]
     Active Substance: CILOSTAZOL
     Indication: BRUGADA SYNDROME
     Dosage: 200 MG, DAILY DOSE
     Route: 048
  2. QUINIDINE SULFATE DIHYDRATE [Suspect]
     Active Substance: QUINIDINE SULFATE
     Indication: BRUGADA SYNDROME
     Dosage: 1200 MG, DAILY DOSE
     Route: 048

REACTIONS (2)
  - Ventricular tachycardia [Recovering/Resolving]
  - Product use in unapproved indication [Unknown]
